FAERS Safety Report 11810333 (Version 2)
Quarter: 2015Q4

REPORT INFORMATION
  Report Type: Spontaneous
  Country: US (occurrence: US)
  Receive Date: 20151208
  Receipt Date: 20151221
  Transmission Date: 20160305
  Serious: Yes (Other)
  Sender: FDA-Public Use
  Company Number: US-009507513-1512USA003946

PATIENT
  Sex: Female

DRUGS (3)
  1. JANUMET [Suspect]
     Active Substance: METFORMIN HYDROCHLORIDE\SITAGLIPTIN PHOSPHATE
     Dosage: UNK
     Route: 048
     Dates: start: 20100208, end: 20100308
  2. JANUVIA [Suspect]
     Active Substance: SITAGLIPTIN PHOSPHATE
     Dosage: UNK
     Route: 048
     Dates: start: 20120217, end: 20120317
  3. BYETTA [Suspect]
     Active Substance: EXENATIDE
     Dosage: UNK
     Dates: start: 20120321, end: 20130307

REACTIONS (1)
  - Pancreatic carcinoma [Unknown]

NARRATIVE: CASE EVENT DATE: 20121212
